FAERS Safety Report 8557239 (Version 3)
Quarter: 2012Q4

REPORT INFORMATION
  Report Type: Spontaneous
  Country: US (occurrence: None)
  Receive Date: 20120504
  Receipt Date: 20120906
  Transmission Date: 20130627
  Serious: Yes (Hospitalization)
  Sender: FDA-Public Use
  Company Number: AXC-2012-000208

PATIENT
  Age: 33 Year
  Sex: Male
  Weight: 52.8 kg

DRUGS (16)
  1. ZENPEP [Suspect]
     Indication: PANCREATIC INSUFFICIENCY
     Dosage: 8-10 WITH MEALS
     Route: 048
     Dates: start: 2010
  2. ALBUTEROL [Concomitant]
  3. ZITHROMAX [Concomitant]
  4. CAYSTON [Concomitant]
  5. CALCIUM CARBONATE [Concomitant]
  6. VITAMIN D [Concomitant]
  7. PULMOZYME [Concomitant]
  8. SPIRIVA [Concomitant]
  9. ADVAIR HFA [Concomitant]
  10. MEPHYTON (PHYTOMENADIONE) [Concomitant]
  11. PRILOSEC [Concomitant]
  12. HYPERSOL B (BUDESONIDE) [Concomitant]
  13. COLISTIN (COLISTIN) [Concomitant]
  14. ACTIGALL [Concomitant]
  15. VANCOMYCIN [Concomitant]
  16. BONIVA [Concomitant]

REACTIONS (2)
  - Constipation [None]
  - Distal ileal obstruction syndrome [None]
